FAERS Safety Report 8919549 (Version 3)
Quarter: 2013Q4

REPORT INFORMATION
  Report Type: Report from Study
  Country: JP (occurrence: JP)
  Receive Date: 20121121
  Receipt Date: 20131018
  Transmission Date: 20140711
  Serious: Yes (Other)
  Sender: FDA-Public Use
  Company Number: JP-VERTEX PHARMACEUTICAL INC.-AE-2012-007662

PATIENT
  Age: 46 Year
  Sex: Female

DRUGS (12)
  1. VX-950 (TELAPREVIR) [Suspect]
     Indication: CHRONIC HEPATITIS C
     Dosage: 2250 MG, QD
     Route: 048
     Dates: start: 20120208, end: 20120320
  2. VX-950 (TELAPREVIR) [Suspect]
     Dosage: 1500 MG, QD
     Route: 048
     Dates: start: 20120321, end: 20120327
  3. RIBAVIRIN [Suspect]
     Indication: CHRONIC HEPATITIS C
     Dosage: 800 MG, QD
     Route: 048
     Dates: start: 20120208, end: 20120228
  4. RIBAVIRIN [Suspect]
     Dosage: 600 MG, QD
     Route: 048
     Dates: start: 20120229, end: 20120306
  5. RIBAVIRIN [Suspect]
     Dosage: 400 MG, QD
     Route: 048
     Dates: start: 20120307, end: 20120327
  6. PEGINTERFERON ALFA-2B [Suspect]
     Indication: CHRONIC HEPATITIS C
     Dosage: 1.5 ?G/KG, WEEKLY
     Route: 058
     Dates: start: 20120208, end: 20120328
  7. NU-LOTAN [Concomitant]
     Dosage: 25 MG, QD
     Route: 048
     Dates: end: 20120320
  8. GASTER D [Concomitant]
     Dosage: 20 MG, QD
     Route: 048
     Dates: start: 20120213
  9. MUCOSTA [Concomitant]
     Dosage: 300 MG, QD
     Route: 048
     Dates: start: 20120213
  10. MARZULENE-S [Concomitant]
     Dosage: 2.01 G, QD
     Route: 048
     Dates: start: 20120213
  11. GLACTIV [Concomitant]
     Dosage: 50 MG, QD
     Route: 048
  12. METGLUCO [Concomitant]
     Dosage: 500 MG, QD
     Route: 048
     Dates: start: 20120711

REACTIONS (2)
  - Haemoglobin decreased [Recovered/Resolved]
  - Retinopathy [Recovered/Resolved]
